FAERS Safety Report 12668291 (Version 5)
Quarter: 2016Q3

REPORT INFORMATION
  Report Type: Spontaneous
  Country: US (occurrence: US)
  Receive Date: 20160819
  Receipt Date: 20160926
  Transmission Date: 20161109
  Serious: Yes (Other)
  Sender: FDA-Public Use
  Company Number: US-LUNDBECK-DKLU2017778

PATIENT
  Age: 83 Year
  Sex: Male

DRUGS (7)
  1. NORTHERA [Suspect]
     Active Substance: DROXIDOPA
     Dosage: SCHEDULE B AND TITRATING
     Route: 065
  2. NORTHERA [Suspect]
     Active Substance: DROXIDOPA
     Route: 065
  3. NORTHERA [Suspect]
     Active Substance: DROXIDOPA
     Route: 065
  4. NORTHERA [Suspect]
     Active Substance: DROXIDOPA
     Indication: ORTHOSTATIC HYPOTENSION
     Dosage: SCHEDULE B (TITRATING)
     Route: 065
     Dates: start: 20160810
  5. NORTHERA [Suspect]
     Active Substance: DROXIDOPA
     Route: 048
     Dates: start: 20160805
  6. NORTHERA [Suspect]
     Active Substance: DROXIDOPA
     Route: 065
     Dates: start: 20160819
  7. NORTHERA [Suspect]
     Active Substance: DROXIDOPA
     Route: 065

REACTIONS (8)
  - Dizziness [Not Recovered/Not Resolved]
  - Hypertension [Recovered/Resolved]
  - Blood pressure decreased [Unknown]
  - Musculoskeletal chest pain [Unknown]
  - Fall [Unknown]
  - Loss of consciousness [Unknown]
  - Laceration [Unknown]
  - Contusion [Unknown]

NARRATIVE: CASE EVENT DATE: 20160811
